FAERS Safety Report 22399399 (Version 1)
Quarter: 2023Q2

REPORT INFORMATION
  Report Type: Spontaneous
  Country: DE (occurrence: DE)
  Receive Date: 20230602
  Receipt Date: 20230602
  Transmission Date: 20230722
  Serious: Yes (Other)
  Sender: FDA-Public Use
  Company Number: DE-CELLTRION INC.-2023DE011293

PATIENT

DRUGS (5)
  1. RITUXIMAB [Suspect]
     Active Substance: RITUXIMAB
     Indication: Mucous membrane pemphigoid
     Dosage: 1 G, (CYCLE)
  2. DEXAMETHASONE [Concomitant]
     Active Substance: DEXAMETHASONE
     Indication: Mucous membrane pemphigoid
     Dosage: 50 MG; DX PULSES (3 X 50 MG EACH) AT INITIATION OF RITUXIMAB
  3. DEXAMETHASONE [Concomitant]
     Active Substance: DEXAMETHASONE
     Dosage: 50 MG; DX PULSES (3 X 50 MG EACH); SYSTEMIC TREATMENTS UP TO 6 MONTHS AFTER RITUXIMAB
  4. DAPSONE [Concomitant]
     Active Substance: DAPSONE
     Indication: Mucous membrane pemphigoid
     Dosage: 100 MG/D; AT INITIATION OF RITUXIMAB
  5. DAPSONE [Concomitant]
     Active Substance: DAPSONE
     Dosage: 100 MG/D; SYSTEMIC TREATMENTS UP TO 6 MONTHS OF RITUXIMAB

REACTIONS (2)
  - Mucous membrane pemphigoid [Unknown]
  - Off label use [Unknown]
